FAERS Safety Report 22379490 (Version 1)
Quarter: 2023Q2

REPORT INFORMATION
  Report Type: Other
  Country: HU (occurrence: HU)
  Receive Date: 20230529
  Receipt Date: 20230529
  Transmission Date: 20230722
  Serious: Yes (Other)
  Sender: FDA-Public Use
  Company Number: HU-ROCHE-3234019

PATIENT
  Age: 78 Year
  Sex: Female

DRUGS (9)
  1. CAPECITABINE [Suspect]
     Active Substance: CAPECITABINE
     Indication: Triple negative breast cancer
     Route: 048
  2. ATEZOLIZUMAB [Suspect]
     Active Substance: ATEZOLIZUMAB
     Indication: Triple negative breast cancer
     Route: 065
  3. DENOSUMAB [Suspect]
     Active Substance: DENOSUMAB
     Indication: Triple negative breast cancer
     Route: 065
     Dates: start: 202110, end: 202201
  4. DENOSUMAB [Suspect]
     Active Substance: DENOSUMAB
     Indication: Metastases to bone
  5. PACLITAXEL [Suspect]
     Active Substance: PACLITAXEL
     Indication: Metastases to bone
     Route: 065
     Dates: start: 202110, end: 202201
  6. PACLITAXEL [Suspect]
     Active Substance: PACLITAXEL
     Indication: Triple negative breast cancer
  7. PACLITAXEL [Suspect]
     Active Substance: PACLITAXEL
     Indication: Metastases to lymph nodes
  8. EPIRUBICIN [Concomitant]
     Active Substance: EPIRUBICIN
  9. CARBOPLATIN [Concomitant]
     Active Substance: CARBOPLATIN
     Indication: Triple negative breast cancer

REACTIONS (3)
  - Disease progression [Unknown]
  - Metastases to bone [Unknown]
  - Hypothyroidism [Unknown]
